FAERS Safety Report 8599818-3 (Version None)
Quarter: 2012Q3

REPORT INFORMATION
  Report Type: 
  Country: None (occurrence: None)
  Receive Date: 20120816
  Receipt Date: 20120803
  Transmission Date: 20120928
  Serious: Yes (Death)
  Sender: FDA-Public Use
  Company Number: US-MYLANLABS-2010S1018233

PATIENT
  Age: 53 Year
  Sex: Male
  Weight: 116.58 kg

DRUGS (12)
  1. PREDNISONE TAB [Concomitant]
  2. FORTEO [Concomitant]
     Route: 058
  3. FENTANYL CITRATE [Suspect]
     Indication: BACK PAIN
     Dosage: Q72HRS
     Route: 062
     Dates: end: 20081020
  4. ZOLOFT [Concomitant]
  5. INSULIN [Concomitant]
  6. CALCIUM + VITAMIN D [Concomitant]
  7. FENTANYL CITRATE [Suspect]
     Indication: RHEUMATOID ARTHRITIS
     Dosage: Q72HRS
     Route: 062
     Dates: end: 20081020
  8. METOPROLOL TARTRATE [Concomitant]
  9. ECONAZOLE NITRATE [Concomitant]
  10. AMBIEN [Concomitant]
  11. PROTONIX [Concomitant]
  12. OXYCODONE HCL AND ACETAMINOPHEN [Concomitant]
     Dosage: 10MG/325MG

REACTIONS (3)
  - PULMONARY CONGESTION [None]
  - TOXICITY TO VARIOUS AGENTS [None]
  - RENAL CYST [None]
